FAERS Safety Report 20416059 (Version 2)
Quarter: 2022Q1

REPORT INFORMATION
  Report Type: Spontaneous
  Country: US (occurrence: US)
  Receive Date: 20220202
  Receipt Date: 20220218
  Transmission Date: 20220423
  Serious: Yes (Other)
  Sender: FDA-Public Use
  Company Number: US-BAUSCH-BL-2022-002664

PATIENT
  Age: 74 Year
  Sex: Female

DRUGS (1)
  1. LACRISERT [Suspect]
     Active Substance: HYDROXYPROPYL CELLULOSE
     Indication: Product used for unknown indication
     Route: 047

REACTIONS (4)
  - Hypertension [Unknown]
  - Corneal erosion [Unknown]
  - Product availability issue [Unknown]
  - Intentional product use issue [Unknown]
